FAERS Safety Report 18736380 (Version 1)
Quarter: 2021Q1

REPORT INFORMATION
  Report Type: Spontaneous
  Country: US (occurrence: US)
  Receive Date: 20210113
  Receipt Date: 20210113
  Transmission Date: 20210419
  Serious: Yes (Hospitalization, Other)
  Sender: FDA-Public Use
  Company Number: US-TEVA-2021-US-1868147

PATIENT
  Age: 63 Year
  Sex: Female

DRUGS (14)
  1. CURCUMIN [Concomitant]
     Active Substance: CURCUMIN
  2. LYRICA [Concomitant]
     Active Substance: PREGABALIN
  3. COENZYME Q10 [Concomitant]
     Active Substance: DIETARY SUPPLEMENT\UBIDECARENONE
  4. CALTRATE 600+D3 PLUS MINERALS [Concomitant]
  5. VITAMIN B12 [Concomitant]
     Active Substance: CYANOCOBALAMIN
  6. AMPYRA [Suspect]
     Active Substance: DALFAMPRIDINE
     Indication: MULTIPLE SCLEROSIS
     Route: 048
  7. GAMUNEX?C [Suspect]
     Active Substance: HUMAN IMMUNOGLOBULIN G
     Indication: PRODUCT USED FOR UNKNOWN INDICATION
     Route: 065
  8. VITAMIN D [Concomitant]
     Active Substance: VITAMIN D NOS
  9. LEVOTHYROXINE. [Concomitant]
     Active Substance: LEVOTHYROXINE
  10. SIMVASTATIN. [Concomitant]
     Active Substance: SIMVASTATIN
  11. MAGNESIUM [Concomitant]
     Active Substance: MAGNESIUM
  12. RESTASIS [Concomitant]
     Active Substance: CYCLOSPORINE
     Dosage: DROPERETTE
  13. VITAMIN C [Concomitant]
     Active Substance: ASCORBIC ACID
  14. COPAXONE [Suspect]
     Active Substance: GLATIRAMER ACETATE
     Indication: PRODUCT USED FOR UNKNOWN INDICATION
     Dosage: UNKNOWN FORM STRENGTH AND ROUTE OF ADMINISTRATION
     Route: 065

REACTIONS (9)
  - Scar [Unknown]
  - Injection site mass [Unknown]
  - Ankle fracture [Unknown]
  - Foot deformity [Unknown]
  - Fall [Unknown]
  - Nausea [Unknown]
  - Balance disorder [Unknown]
  - Foot operation [Unknown]
  - Road traffic accident [Unknown]

NARRATIVE: CASE EVENT DATE: 201812
